FAERS Safety Report 17005266 (Version 1)
Quarter: 2019Q4

REPORT INFORMATION
  Report Type: Spontaneous
  Country: US (occurrence: US)
  Receive Date: 20190926
  Receipt Date: 20190926
  Transmission Date: 20200122
  Serious: No
  Sender: FDA-Public Use
  Company Number: None

PATIENT
  Sex: Female

DRUGS (6)
  1. IXCOSAMINE [Concomitant]
  2. HYDROXYYZ [Concomitant]
  3. ENBREL [Concomitant]
     Active Substance: ETANERCEPT
  4. TIZANIDINE. [Concomitant]
     Active Substance: TIZANIDINE
  5. OCALIVA [Suspect]
     Active Substance: OBETICHOLIC ACID
     Indication: PRIMARY BILIARY CHOLANGITIS
     Route: 048
     Dates: start: 20190911
  6. URSODICE [Concomitant]

REACTIONS (1)
  - Musculoskeletal stiffness [None]
